FAERS Safety Report 23415689 (Version 2)
Quarter: 2024Q1

REPORT INFORMATION
  Report Type: Report from Study
  Country: US (occurrence: None)
  Receive Date: 20240118
  Receipt Date: 20240124
  Transmission Date: 20240409
  Serious: Yes (Hospitalization, Other)
  Sender: FDA-Public Use
  Company Number: 2024A012702

PATIENT
  Age: 57 Year
  Sex: Female
  Weight: 121.6 kg

DRUGS (28)
  1. XIGDUO XR [Suspect]
     Active Substance: DAPAGLIFLOZIN PROPANEDIOL\METFORMIN HYDROCHLORIDE
     Route: 048
     Dates: start: 20240106
  2. COVID-19 VACCINE NOS [Suspect]
     Active Substance: COVID-19 VACCINE NOS
     Dosage: 100 MCG/0.5 ML
     Dates: start: 20210326
  3. COVID-19 VACCINE NOS [Suspect]
     Active Substance: COVID-19 VACCINE NOS
     Dates: start: 20231101
  4. INFLUENZA VIRUS VACCINE [Concomitant]
     Active Substance: INFLUENZA VIRUS VACCINE
  5. AMLODIPINE [Concomitant]
     Active Substance: AMLODIPINE BESYLATE
     Dates: start: 20231030
  6. BENAZEPRIL [Concomitant]
     Active Substance: BENAZEPRIL HYDROCHLORIDE
     Dates: start: 20231030
  7. ASPIRIN [Concomitant]
     Active Substance: ASPIRIN
     Dosage: TAKE 1 TABLET BY MOUTH DAILY
     Route: 048
     Dates: start: 20231110
  8. ATORVASTATIN [Concomitant]
     Active Substance: ATORVASTATIN
     Dosage: TAKE 80 MG EVERY DAY BY ORAL ROUTE AS DIRECTED
     Route: 048
     Dates: start: 20231128
  9. CARVEDILOL [Concomitant]
     Active Substance: CARVEDILOL
     Dosage: TAKE 1 TABLET BY MOUTH TWICE A DAY
     Route: 048
     Dates: start: 20231222
  10. GABAPENTIN [Concomitant]
     Active Substance: GABAPENTIN
     Dates: start: 20230730
  11. GLIMEPIRIDE [Concomitant]
     Active Substance: GLIMEPIRIDE
     Dosage: TAKE 4 MG BY ORAL ROUTE FOR 90 DAYS
     Dates: start: 20240106
  12. MELOXICAM [Concomitant]
     Active Substance: MELOXICAM
     Dates: start: 20230511
  13. OLOPATADINE [Concomitant]
     Active Substance: OLOPATADINE
     Dates: start: 20231006
  14. POTASSIUM CHLORIDE [Concomitant]
     Active Substance: POTASSIUM CHLORIDE
     Dates: start: 20231018
  15. TOBRAMYCIN [Concomitant]
     Active Substance: TOBRAMYCIN
     Dates: start: 20231006
  16. TORSEMIDE [Concomitant]
     Active Substance: TORSEMIDE
     Dosage: TAKE 1 TABLET 3 TIMES A DAY BY ORAL ROUTE.
     Dates: start: 20231220
  17. TRULICITY [Concomitant]
     Active Substance: DULAGLUTIDE
     Dosage: INJECT 4.5 MG EVERY WEEK BY SUBCUTANEOUS ROUTE.
     Route: 058
     Dates: start: 20231220
  18. XARELTO [Concomitant]
     Active Substance: RIVAROXABAN
     Dosage: TAKE ONE TABLET BY MOUTH DAILY
     Route: 048
     Dates: start: 20231018
  19. TETANUS TOXOID, REDUCED DIPHTHERIA TOXOID AND ACELLULAR PERTUSSIS VACC [Concomitant]
     Active Substance: TETANUS TOXOID, REDUCED DIPHTHERIA TOXOID AND ACELLULAR PERTUSSIS VACCINE ADSORBED, TDAP
     Route: 030
     Dates: start: 20171116
  20. INFLUENZA VIRUS VACCINE [Concomitant]
     Active Substance: INFLUENZA VIRUS VACCINE
     Dates: start: 20151104
  21. INFLUENZA VIRUS VACCINE [Concomitant]
     Active Substance: INFLUENZA VIRUS VACCINE
     Route: 030
     Dates: start: 20161116
  22. INFLUENZA VIRUS VACCINE [Concomitant]
     Active Substance: INFLUENZA VIRUS VACCINE
     Route: 030
     Dates: start: 20171116
  23. INFLUENZA VIRUS VACCINE [Concomitant]
     Active Substance: INFLUENZA VIRUS VACCINE
     Route: 030
     Dates: start: 20181127
  24. INFLUENZA VIRUS VACCINE [Concomitant]
     Active Substance: INFLUENZA VIRUS VACCINE
     Route: 030
     Dates: start: 20191210
  25. INFLUENZA VIRUS VACCINE [Concomitant]
     Active Substance: INFLUENZA VIRUS VACCINE
     Route: 030
     Dates: start: 20211129
  26. INFLUENZA VIRUS VACCINE [Concomitant]
     Active Substance: INFLUENZA VIRUS VACCINE
     Dates: start: 20231101
  27. PNEUMOCOCCAL CONJUGATE [Concomitant]
     Dates: start: 20190604
  28. PNEUMOCOCCAL CONJUGATE [Concomitant]
     Dates: start: 20231101

REACTIONS (13)
  - Faeces discoloured [Unknown]
  - Upper gastrointestinal haemorrhage [Unknown]
  - Asthenia [Unknown]
  - Food poisoning [Unknown]
  - Influenza [Unknown]
  - Asthenia [Unknown]
  - Haemoglobin decreased [Unknown]
  - Pain [Unknown]
  - Muscle spasms [Unknown]
  - Hypoaesthesia [Unknown]
  - Paraesthesia [Unknown]
  - Vision blurred [Unknown]
  - Inability to afford medication [Unknown]
